FAERS Safety Report 10151175 (Version 1)
Quarter: 2014Q2

REPORT INFORMATION
  Report Type: Spontaneous
  Country: US (occurrence: US)
  Receive Date: 20140502
  Receipt Date: 20140502
  Transmission Date: 20141212
  Serious: No
  Sender: FDA-Public Use
  Company Number: US-ASTRAZENECA-2013SE92562

PATIENT
  Age: 94 Year
  Sex: Female

DRUGS (2)
  1. PRILOSEC OTC [Suspect]
     Route: 048
     Dates: start: 20131214, end: 20131215
  2. CARDIOVASCULAR SYSTEM DRUGS [Concomitant]
     Dosage: UNKNOWN

REACTIONS (2)
  - Glossodynia [Recovered/Resolved]
  - Inappropriate schedule of drug administration [Unknown]
